FAERS Safety Report 9660559 (Version 2)
Quarter: 2013Q4

REPORT INFORMATION
  Report Type: Report from Study
  Country: CA (occurrence: CA)
  Receive Date: 20131031
  Receipt Date: 20131031
  Transmission Date: 20140711
  Serious: Yes (Death, Other)
  Sender: FDA-Public Use
  Company Number: CA-ABBVIE-13P-028-1056873-00

PATIENT
  Age: 78 Year
  Sex: Male
  Weight: 59.93 kg

DRUGS (1)
  1. LUPRON DEPOT [Suspect]
     Indication: PROSTATE CANCER
     Dosage: 4 MONTH DEPOT
     Route: 030
     Dates: start: 200912

REACTIONS (7)
  - Death [Fatal]
  - Plasma cell myeloma [Unknown]
  - Renal failure [Unknown]
  - Condition aggravated [Unknown]
  - Pneumonia [Unknown]
  - General physical health deterioration [Unknown]
  - Dementia [Not Recovered/Not Resolved]
